FAERS Safety Report 8436970-4 (Version None)
Quarter: 2012Q2

REPORT INFORMATION
  Report Type: 
  Country: None (occurrence: None)
  Receive Date: 20120323
  Receipt Date: 20110720
  Transmission Date: 20120825
  Serious: Yes (Hospitalization, Other)
  Sender: FDA-Public Use
  Company Number: 163-21880-11064046

PATIENT
  Age: 81 Year
  Sex: Female

DRUGS (4)
  1. RED YEAST RICE (YEAST) [Concomitant]
  2. LENALIDOMIDE [Suspect]
     Indication: MULTIPLE MYELOMA
     Dosage: 15 MG, DAILY X 21 DAYS, PO
     Route: 048
     Dates: start: 20101010
  3. FUROSEMIDE [Concomitant]
  4. FISH OIL (FISH OIL) [Concomitant]

REACTIONS (1)
  - OSTEOMYELITIS [None]
